FAERS Safety Report 4719959-8 (Version None)
Quarter: 2005Q3

REPORT INFORMATION
  Report Type: 
  Country: None (occurrence: None)
  Receive Date: 20050721
  Receipt Date: 20050214
  Transmission Date: 20060218
  Serious: No
  Sender: FDA-Public Use
  Company Number: US-GLAXOSMITHKLINE-A0545479A

PATIENT
  Age: 75 Year
  Sex: Female

DRUGS (13)
  1. AVANDIA [Suspect]
     Indication: PRURITUS
     Dosage: 4MG THREE TIMES PER DAY
     Route: 048
     Dates: start: 20050208
  2. NEURONTIN [Concomitant]
  3. LASIX [Concomitant]
  4. PERCODAN [Concomitant]
  5. CAPOZIDE [Concomitant]
  6. PREMARIN [Concomitant]
  7. CAPOTEN [Concomitant]
  8. COREG [Concomitant]
  9. CAPTOPRIL [Concomitant]
  10. LANOXIN [Concomitant]
  11. PROTONIX [Concomitant]
  12. SLOW-K [Concomitant]
  13. ALOPURINOL [Concomitant]

REACTIONS (1)
  - FLATULENCE [None]
